FAERS Safety Report 8477869-7 (Version None)
Quarter: 2012Q2

REPORT INFORMATION
  Report Type: 
  Country: None (occurrence: None)
  Receive Date: 20120629
  Receipt Date: 20120627
  Transmission Date: 20120825
  Serious: Yes (Death, Life-Threatening, Hospitalization)
  Sender: FDA-Public Use
  Company Number: AU-B.I. PHARMACEUTICALS,INC./RIDGEFIELD-2012-AU-01176AU

PATIENT
  Sex: Male

DRUGS (4)
  1. PLAVIX [Concomitant]
     Dates: start: 20120601
  2. PRADAXA [Suspect]
     Indication: ATRIAL FIBRILLATION
     Dosage: 300 MG
     Dates: start: 20110701
  3. ASPIRIN [Concomitant]
     Dates: start: 20120601
  4. METOPROLOL SUCCINATE [Concomitant]
     Dosage: 100 MG

REACTIONS (2)
  - CARDIAC ARREST [None]
  - ACUTE MYOCARDIAL INFARCTION [None]
